FAERS Safety Report 12349868 (Version 1)
Quarter: 2016Q2

REPORT INFORMATION
  Report Type: Spontaneous
  Country: US (occurrence: US)
  Receive Date: 20160510
  Receipt Date: 20160510
  Transmission Date: 20160815
  Serious: No
  Sender: FDA-Public Use
  Company Number: US-BAYER-2016-088871

PATIENT
  Age: 85 Year
  Sex: Male
  Weight: 74.83 kg

DRUGS (3)
  1. MIRALAX [Suspect]
     Active Substance: POLYETHYLENE GLYCOL 3350
     Indication: IRRITABLE BOWEL SYNDROME
     Dosage: 1 DF, PRN
     Route: 048
     Dates: start: 201603
  2. STATIN [Concomitant]
     Active Substance: UNSPECIFIED INGREDIENT
  3. MIRALAX [Suspect]
     Active Substance: POLYETHYLENE GLYCOL 3350
     Indication: BOWEL MOVEMENT IRREGULARITY

REACTIONS (2)
  - Circumstance or information capable of leading to medication error [None]
  - Off label use [None]

NARRATIVE: CASE EVENT DATE: 201603
